FAERS Safety Report 8025734-1 (Version None)
Quarter: 2012Q1

REPORT INFORMATION
  Report Type: 
  Country: None (occurrence: None)
  Receive Date: 20120105
  Receipt Date: 20110114
  Transmission Date: 20120608
  Serious: No
  Sender: FDA-Public Use
  Company Number: US-ABBOTT-11P-163-0698986-00

PATIENT
  Sex: Female
  Weight: 55.388 kg

DRUGS (4)
  1. SYNTHROID [Suspect]
     Indication: AUTOIMMUNE THYROIDITIS
     Route: 048
     Dates: start: 20101001
  2. XANAX [Concomitant]
  3. XANAX [Concomitant]
     Indication: ANXIETY
  4. SKELAXIN [Concomitant]
     Indication: ANXIETY

REACTIONS (3)
  - SUNBURN [None]
  - ANXIETY [None]
  - RASH PAPULAR [None]
